FAERS Safety Report 4403789-0 (Version None)
Quarter: 2004Q3

REPORT INFORMATION
  Report Type: 
  Country: None (occurrence: None)
  Receive Date: 20040719
  Receipt Date: 20040712
  Transmission Date: 20050211
  Serious: Yes (Life-Threatening, Other)
  Sender: FDA-Public Use
  Company Number: 1199510271

PATIENT
  Age: 57 Year
  Sex: Female
  Weight: 71 kg

DRUGS (2)
  1. TRASYLOL [Suspect]
     Indication: HAEMORRHAGE
     Dosage: 200 ML, TOTAL DAILY, INTRAVENOUS
     Route: 042
     Dates: start: 19941019
  2. TRASYLOL [Suspect]
     Indication: PROPHYLAXIS
     Dosage: 200 ML, TOTAL DAILY, INTRAVENOUS
     Route: 042
     Dates: start: 19941019

REACTIONS (3)
  - ANAPHYLACTIC SHOCK [None]
  - ANGIOPATHY [None]
  - LUNG DISORDER [None]
